FAERS Safety Report 25934427 (Version 1)
Quarter: 2025Q4

REPORT INFORMATION
  Report Type: Spontaneous
  Country: EU (occurrence: EU)
  Receive Date: 20251017
  Receipt Date: 20251017
  Transmission Date: 20260117
  Serious: Yes (Other)
  Sender: ELI LILLY AND COMPANY
  Company Number: EU-SANDOZ-SDZ2025AT072026

PATIENT
  Age: 12 Year

DRUGS (6)
  1. PEMETREXED [Suspect]
     Active Substance: PEMETREXED
     Indication: Chordoma
     Dosage: UNK UNK, EVERY 3 WEEKS
     Route: 065
     Dates: start: 20250303
  2. PEMETREXED [Suspect]
     Active Substance: PEMETREXED
     Dosage: UNK UNK, UNKNOWN
     Route: 065
     Dates: start: 20250715
  3. GEMCITABINE [Suspect]
     Active Substance: GEMCITABINE
     Indication: Chordoma
     Dosage: UNK, UNKNOWN
     Route: 065
     Dates: start: 20231027, end: 20250213
  4. GEMCITABINE [Suspect]
     Active Substance: GEMCITABINE
     Dosage: UNK, EVERY 3 WEEKS
     Route: 065
     Dates: start: 20250303
  5. AFATINIB [Suspect]
     Active Substance: AFATINIB
     Indication: Chordoma
     Dosage: UNK UNK, UNKNOWN
     Route: 065
     Dates: start: 20231027, end: 20250213
  6. AFATINIB [Suspect]
     Active Substance: AFATINIB
     Dosage: UNK UNK, EVERY 3 WEEKS
     Route: 065
     Dates: start: 20250303

REACTIONS (4)
  - Chordoma [Unknown]
  - Malignant neoplasm progression [Unknown]
  - Malignant glioma [Unknown]
  - Off label use [Unknown]

NARRATIVE: CASE EVENT DATE: 20250701
